FAERS Safety Report 9512503 (Version 1)
Quarter: 2013Q3

REPORT INFORMATION
  Report Type: Spontaneous
  Country: US (occurrence: US)
  Receive Date: 20130910
  Receipt Date: 20130910
  Transmission Date: 20140515
  Serious: Yes (Hospitalization)
  Sender: FDA-Public Use
  Company Number: US-PFIZER INC-2013258089

PATIENT
  Age: 59 Year
  Sex: Female
  Weight: 58.96 kg

DRUGS (6)
  1. LIPITOR [Suspect]
     Indication: BLOOD CHOLESTEROL INCREASED
     Dosage: 40 MG, 1X/DAY
     Route: 048
     Dates: start: 2001
  2. LYRICA [Concomitant]
     Dosage: UNK
  3. ZETIA [Concomitant]
     Dosage: UNK
  4. JANUVIA [Concomitant]
     Dosage: 100 MG, 1X/DAY
  5. METFORMIN XR [Concomitant]
     Dosage: 500 MG, UNK
  6. ACTOS [Concomitant]
     Indication: DIABETES MELLITUS
     Dosage: 45 MG, 1X/DAY

REACTIONS (2)
  - Perforated ulcer [Unknown]
  - Weight increased [Unknown]
